FAERS Safety Report 8083915-5 (Version None)
Quarter: 2012Q1

REPORT INFORMATION
  Report Type: 
  Country: None (occurrence: None)
  Receive Date: 20120128
  Receipt Date: 20110112
  Transmission Date: 20120608
  Serious: No
  Sender: FDA-Public Use
  Company Number: US-ABBOTT-11P-163-0697295-00

PATIENT
  Age: 50 Year
  Sex: Male

DRUGS (11)
  1. HUMIRA [Suspect]
     Indication: CROHN'S DISEASE
     Dates: start: 20101201
  2. PENTASA [Concomitant]
     Indication: CROHN'S DISEASE
  3. ALLEGRA [Concomitant]
     Indication: HYPERSENSITIVITY
  4. CYMBALTA [Concomitant]
     Indication: BIPOLAR DISORDER
  5. ABILIFY [Concomitant]
     Indication: BIPOLAR DISORDER
  6. ALLERGY SHOT [Concomitant]
     Indication: PRODUCT USED FOR UNKNOWN INDICATION
     Dosage: ONCE EVERY 1-2 WEEKS
  7. EQUETRO [Concomitant]
     Indication: BIPOLAR DISORDER
  8. CRESTOR [Concomitant]
     Indication: BLOOD CHOLESTEROL INCREASED
  9. ACIPHEX [Concomitant]
     Indication: EPIGASTRIC DISCOMFORT
  10. ALLEGRA-D 12 HOUR [Concomitant]
     Indication: HYPERSENSITIVITY
     Dosage: TWICE A DAY IF NOT TAKING ALLEGRA 180 MG
  11. SINGULAIR [Concomitant]
     Indication: HYPERSENSITIVITY

REACTIONS (4)
  - WOUND DEHISCENCE [None]
  - WOUND COMPLICATION [None]
  - FEELING HOT [None]
  - WOUND SECRETION [None]
